FAERS Safety Report 23056799 (Version 1)
Quarter: 2023Q4

REPORT INFORMATION
  Report Type: Spontaneous
  Country: US (occurrence: US)
  Receive Date: 20231012
  Receipt Date: 20231012
  Transmission Date: 20240110
  Serious: No
  Sender: FDA-Public Use
  Company Number: US-ABBVIE-5446712

PATIENT
  Sex: Female

DRUGS (2)
  1. IMBRUVICA [Suspect]
     Active Substance: IBRUTINIB
     Indication: Product used for unknown indication
     Dosage: 140 MG STRENGTH?TAKE 3 CAPSULES BY MOUTH ONCE DAILY.
     Route: 048
  2. IMBRUVICA [Suspect]
     Active Substance: IBRUTINIB
     Indication: Product used for unknown indication
     Dosage: 140MG CAPS TAKE 2 CAPS EVERY DAY?140 MG STRENGTH
     Route: 048

REACTIONS (1)
  - Pneumonia [Unknown]
